FAERS Safety Report 17878053 (Version 2)
Quarter: 2020Q2

REPORT INFORMATION
  Report Type: Spontaneous
  Country: US (occurrence: US)
  Receive Date: 20200610
  Receipt Date: 20200622
  Transmission Date: 20200714
  Serious: No
  Sender: FDA-Public Use
  Company Number: US-AMGEN-USASP2020090820

PATIENT
  Age: 54 Year
  Sex: Female

DRUGS (5)
  1. GLUTATHIONE [Concomitant]
     Active Substance: GLUTATHIONE
     Dosage: 20 DROP, QD
  2. REPATHA [Suspect]
     Active Substance: EVOLOCUMAB
     Indication: BLOOD CHOLESTEROL INCREASED
     Dosage: 140 MILLIGRAM, Q2WK
     Route: 065
  3. CHLOROPHYLL [Concomitant]
     Dosage: 20 DROP, QD
  4. MSM [METHYLSULFONYLMETHANE] [Concomitant]
     Dosage: 20 DROP, QD
  5. BIOTIN [Concomitant]
     Active Substance: BIOTIN
     Dosage: 20 DROP, QD

REACTIONS (8)
  - Blood cholesterol abnormal [Unknown]
  - Accidental exposure to product [Unknown]
  - Stress [Unknown]
  - Vitamin D decreased [Unknown]
  - Device defective [Unknown]
  - Fatigue [Unknown]
  - Wrong technique in product usage process [Unknown]
  - Migraine [Unknown]

NARRATIVE: CASE EVENT DATE: 2018
